FAERS Safety Report 23975949 (Version 1)
Quarter: 2024Q2

REPORT INFORMATION
  Report Type: Spontaneous
  Country: HR (occurrence: HR)
  Receive Date: 20240614
  Receipt Date: 20240614
  Transmission Date: 20240717
  Serious: Yes (Congenital Anomaly, Other)
  Sender: FDA-Public Use
  Company Number: HR-002147023-NVSC2024HR089808

PATIENT
  Sex: Male
  Weight: 3.36 kg

DRUGS (1)
  1. KESIMPTA [Suspect]
     Active Substance: OFATUMUMAB
     Indication: Foetal exposure during pregnancy
     Dosage: 20 MG, QMO
     Route: 064
     Dates: start: 20230105, end: 20230601

REACTIONS (3)
  - Ventricular septal defect [Recovering/Resolving]
  - Cardiac murmur [Recovering/Resolving]
  - Foetal exposure during pregnancy [Unknown]
